FAERS Safety Report 7065143-5 (Version None)
Quarter: 2010Q4

REPORT INFORMATION
  Report Type: 
  Country: None (occurrence: None)
  Receive Date: 20101027
  Receipt Date: 20101022
  Transmission Date: 20110411
  Serious: Yes (Other)
  Sender: FDA-Public Use
  Company Number: US-PFIZER INC-2007055810

PATIENT
  Sex: Female
  Weight: 66.667 kg

DRUGS (10)
  1. CHANTIX [Suspect]
     Indication: SMOKING CESSATION THERAPY
     Dosage: 0.5 MG, 1X/DAY
     Dates: start: 20070622
  2. CHANTIX [Suspect]
     Dosage: 1 MG, 2X/DAY
     Dates: start: 20070101
  3. CHANTIX [Suspect]
     Dosage: UNK
     Dates: start: 20090101
  4. CHANTIX [Suspect]
     Dosage: 1 MG, 2X/DAY
     Dates: start: 20100911
  5. NEURONTIN [Suspect]
     Indication: PAIN
     Dosage: 300 MG, 3X/DAY
  6. BUPRENORPHINE HCL AND NALOXONE HCL [Suspect]
     Indication: PAIN
     Dosage: ONCE DAILY
  7. VALSARTAN [Concomitant]
     Indication: HYPERTENSION
     Dosage: 80 MG, DAILY
  8. CRESTOR [Concomitant]
     Indication: BLOOD CHOLESTEROL INCREASED
     Dosage: 10 MG, DAILY
  9. NEXIUM [Concomitant]
     Indication: GASTROOESOPHAGEAL REFLUX DISEASE
     Dosage: 40 MG, AS NEEDED
  10. METHOTREXATE [Concomitant]
     Indication: RHEUMATOID ARTHRITIS
     Dosage: UNK, WEEKLY

REACTIONS (3)
  - AGITATION [None]
  - DEPRESSION [None]
  - TYPE 2 DIABETES MELLITUS [None]
